FAERS Safety Report 9170304 (Version 1)
Quarter: 2013Q1

REPORT INFORMATION
  Report Type: Spontaneous
  Country: US (occurrence: None)
  Receive Date: 20130307
  Receipt Date: 20130307
  Transmission Date: 20140127
  Serious: Yes (Other)
  Sender: FDA-Public Use
  Company Number: SYM-2013-00999

PATIENT
  Age: 70 Year
  Sex: Male

DRUGS (1)
  1. XENAZINE (TETRABENAZINE) (TABLETS) (TETRABENAZINE) [Suspect]
     Indication: TOURETTE^S DISORDER
     Route: 048
     Dates: start: 20121113

REACTIONS (5)
  - Feeling abnormal [None]
  - Insomnia [None]
  - Fatigue [None]
  - Weight increased [None]
  - Decreased activity [None]
